FAERS Safety Report 20247286 (Version 7)
Quarter: 2022Q1

REPORT INFORMATION
  Report Type: Report from Study
  Country: CA (occurrence: CA)
  Receive Date: 20211229
  Receipt Date: 20220329
  Transmission Date: 20220423
  Serious: Yes (Hospitalization, Other)
  Sender: FDA-Public Use
  Company Number: CA-OTSUKA-2021_040809

PATIENT
  Age: 63 Year
  Sex: Female

DRUGS (2)
  1. CEDAZURIDINE\DECITABINE [Suspect]
     Active Substance: CEDAZURIDINE\DECITABINE
     Indication: Myelodysplastic syndrome
     Dosage: UNK, QD (5 PILLS PER CYCLE)
     Route: 065
     Dates: start: 20211121
  2. CEDAZURIDINE\DECITABINE [Suspect]
     Active Substance: CEDAZURIDINE\DECITABINE
     Dosage: 1 DF, QD (1-4 DAYS) AT CYCLE 3
     Route: 065
     Dates: start: 20220226

REACTIONS (11)
  - Transfusion reaction [Unknown]
  - Transfusion [Unknown]
  - Packed red blood cell transfusion [Unknown]
  - Pneumonia [Unknown]
  - Neutrophil count decreased [Unknown]
  - Constipation [Unknown]
  - Vomiting [Unknown]
  - Nausea [Unknown]
  - Diarrhoea [Unknown]
  - Therapy interrupted [Unknown]
  - Product use issue [Unknown]

NARRATIVE: CASE EVENT DATE: 20211121
